FAERS Safety Report 9792764 (Version 1)
Quarter: 2013Q4

REPORT INFORMATION
  Report Type: Spontaneous
  Country: US (occurrence: None)
  Receive Date: 20131231
  Receipt Date: 20131231
  Transmission Date: 20140711
  Serious: Yes (Other)
  Sender: FDA-Public Use
  Company Number: None

PATIENT
  Age: 47 Year
  Sex: Female
  Weight: 52.16 kg

DRUGS (1)
  1. MONISTAT 7 [Suspect]
     Indication: FUNGAL INFECTION
     Dosage: ONE CREAM FILLED APPLICATOR
     Route: 067
     Dates: start: 20131119, end: 20131122

REACTIONS (8)
  - Abdominal pain lower [None]
  - Gait disturbance [None]
  - Radiation associated pain [None]
  - Rash [None]
  - Pruritus [None]
  - Acne [None]
  - Hypersensitivity [None]
  - Unevaluable event [None]
